FAERS Safety Report 8445352-0 (Version None)
Quarter: 2012Q2

REPORT INFORMATION
  Report Type: 
  Country: None (occurrence: None)
  Receive Date: 20120618
  Receipt Date: 20120324
  Transmission Date: 20120825
  Serious: No
  Sender: FDA-Public Use
  Company Number: US-TEVA-329904USA

PATIENT
  Sex: Female
  Weight: 70.37 kg

DRUGS (7)
  1. FENTORA [Suspect]
     Indication: SYSTEMIC LUPUS ERYTHEMATOSUS
  2. METHADONE HCL [Concomitant]
     Indication: PAIN
  3. FENTORA [Suspect]
     Indication: FIBROMYALGIA
     Route: 002
  4. FENTORA [Suspect]
     Indication: MIGRAINE
  5. CARISOPRODOL [Concomitant]
     Indication: MUSCLE RELAXANT THERAPY
  6. ALPRAZOLAM [Concomitant]
     Indication: ANXIETY
  7. ZOLPIDEM TARTRATE [Concomitant]

REACTIONS (2)
  - OFF LABEL USE [None]
  - GINGIVAL DISORDER [None]
